FAERS Safety Report 15066578 (Version 1)
Quarter: 2018Q2

REPORT INFORMATION
  Report Type: Spontaneous
  Country: JP (occurrence: JP)
  Receive Date: 20180626
  Receipt Date: 20180626
  Transmission Date: 20180711
  Serious: Yes (Hospitalization, Other)
  Sender: FDA-Public Use
  Company Number: JP-PFIZER INC-2018166253

PATIENT
  Age: 71 Year
  Sex: Female
  Weight: 34 kg

DRUGS (6)
  1. EVISTA [Concomitant]
     Active Substance: RALOXIFENE HYDROCHLORIDE
     Indication: OSTEOPOROSIS
     Dosage: 60 MG, 1X/DAY (ONCE DAILY)
     Route: 048
     Dates: start: 20080109
  2. SELBEX [Concomitant]
     Active Substance: TEPRENONE
     Indication: PROPHYLAXIS
     Dosage: 0.5 G, 2X/DAY (TWICE DAILY)
     Route: 048
     Dates: start: 19930728
  3. TAGAMET [Concomitant]
     Active Substance: CIMETIDINE
     Indication: PROPHYLAXIS
     Dosage: 200 MG, 2X/DAY (TWICE DAILY)
     Route: 048
     Dates: start: 19960627
  4. PREDONINE [Concomitant]
     Active Substance: PREDNISOLONE
     Indication: RHEUMATOID ARTHRITIS
     Dosage: 5 MG, DAILY
     Route: 048
     Dates: start: 19891101
  5. HYPEN [Concomitant]
     Active Substance: ETODOLAC
     Indication: RHEUMATOID ARTHRITIS
     Dosage: 200 MG, 2X/DAY (TWICE DAILY)
     Route: 048
     Dates: start: 20011215
  6. RHEUMATREX [Suspect]
     Active Substance: METHOTREXATE SODIUM
     Indication: RHEUMATOID ARTHRITIS
     Dosage: 6 MG, WEEKLY
     Route: 048
     Dates: start: 19980418, end: 20160807

REACTIONS (2)
  - Lymphoproliferative disorder [Recovered/Resolved]
  - Nutritional condition abnormal [Unknown]

NARRATIVE: CASE EVENT DATE: 201608
